FAERS Safety Report 19188717 (Version 1)
Quarter: 2021Q2

REPORT INFORMATION
  Report Type: Spontaneous
  Country: CA (occurrence: CA)
  Receive Date: 20210427
  Receipt Date: 20210427
  Transmission Date: 20210717
  Serious: Yes (Other)
  Sender: FDA-Public Use
  Company Number: CA-CELLTRION INC.-2021CA005615

PATIENT

DRUGS (11)
  1. HUMIRA [Suspect]
     Active Substance: ADALIMUMAB
     Route: 058
  2. XELJANZ XR [Concomitant]
     Active Substance: TOFACITINIB CITRATE
     Indication: RHEUMATOID ARTHRITIS
     Dosage: 11 MG, 1X/DAY
  3. SULFASALAZINE. [Suspect]
     Active Substance: SULFASALAZINE
     Route: 058
  4. CIMZIA [Suspect]
     Active Substance: CERTOLIZUMAB PEGOL
  5. INFLIXIMAB PFIZER (UNKNOWN) [Suspect]
     Active Substance: INFLIXIMAB
     Dosage: UNK
     Route: 058
  6. RITUXIMAB. [Suspect]
     Active Substance: RITUXIMAB
     Dosage: UNK
  7. DESOXIMETASONE. [Concomitant]
     Active Substance: DESOXIMETASONE
  8. REMICADE [Suspect]
     Active Substance: INFLIXIMAB
  9. METHOTREXATE SODIUM. [Suspect]
     Active Substance: METHOTREXATE SODIUM
  10. STELARA [Suspect]
     Active Substance: USTEKINUMAB
  11. NAPROXEN. [Concomitant]
     Active Substance: NAPROXEN
     Route: 065

REACTIONS (7)
  - Lung neoplasm malignant [Unknown]
  - Respiration abnormal [Unknown]
  - Drug intolerance [Unknown]
  - Synovitis [Unknown]
  - Lung disorder [Unknown]
  - Breast cancer [Unknown]
  - Drug ineffective [Unknown]
